FAERS Safety Report 7426645 (Version 7)
Quarter: 2013Q1

REPORT INFORMATION
  Report Type: Spontaneous
  Country: US (occurrence: US)
  Receive Date: 20100621
  Receipt Date: 20130213
  Transmission Date: 20140127
  Serious: Yes (Other)
  Sender: FDA-Public Use
  Company Number: US-PFIZER INC-2010073167

PATIENT
  Age: 64 Year
  Sex: Male
  Weight: 92.97 kg

DRUGS (10)
  1. DILANTIN [Suspect]
     Indication: EPILEPSY
     Dosage: 300 MG, 1X/DAY
     Route: 048
     Dates: start: 1950
  2. DILANTIN [Suspect]
     Dosage: 270 MG, DAILY (4 TABS QAM AND 5 TABS QPM)
     Route: 048
  3. KEPPRA [Suspect]
     Indication: CONVULSION
     Dosage: 1000MG IN AM, 1500MG IN PM
     Route: 048
  4. DEPAKOTE [Suspect]
     Indication: CONVULSION
     Dosage: UNK
     Route: 048
  5. LAMICTAL [Suspect]
     Indication: CONVULSION
     Dosage: UNK
     Route: 048
  6. LORAZEPAM [Concomitant]
     Indication: GRAND MAL CONVULSION
     Dosage: UNK
     Route: 048
  7. CLONAZEPAM [Concomitant]
     Indication: CONVULSION
     Dosage: 4 MG, DAILY
     Route: 048
  8. MULTIVITAMINS [Concomitant]
     Dosage: UNK
  9. CALCIUM [Concomitant]
     Dosage: UNK
  10. VITAMIN D [Concomitant]
     Dosage: UNK

REACTIONS (23)
  - Grand mal convulsion [Unknown]
  - Brain injury [Unknown]
  - Eye disorder [Unknown]
  - Cataract [Unknown]
  - Glaucoma [Unknown]
  - Rhinorrhoea [Unknown]
  - Keratoconus [Unknown]
  - Strabismus [Unknown]
  - Hypertension [Unknown]
  - Diabetes mellitus [Unknown]
  - Sedation [Recovered/Resolved]
  - Tooth disorder [Unknown]
  - Blood cholesterol increased [Unknown]
  - Urticaria [Unknown]
  - Gastrooesophageal reflux disease [Unknown]
  - Overweight [Unknown]
  - Abdominal distension [Recovered/Resolved]
  - Weight increased [Unknown]
  - Hearing impaired [Unknown]
  - Dizziness [Unknown]
  - Headache [Unknown]
  - Gingival swelling [Unknown]
  - Oesophageal irritation [Unknown]
